FAERS Safety Report 9427293 (Version 1)
Quarter: 2013Q3

REPORT INFORMATION
  Report Type: Report from Study
  Country: US (occurrence: US)
  Receive Date: 20130730
  Receipt Date: 20130730
  Transmission Date: 20140515
  Serious: No
  Sender: FDA-Public Use
  Company Number: US-ABBOTT-12P-163-0976787-00

PATIENT
  Sex: Female
  Weight: 47.67 kg

DRUGS (7)
  1. NIASPAN (COATED) [Suspect]
     Indication: LIPOPROTEIN (A) INCREASED
     Dosage: 750MG FIRST TIME
     Dates: start: 2011
  2. NIASPAN (COATED) [Suspect]
     Dosage: 1000MG WHEN RESTARTED IN APR 2012
     Dates: start: 201204
  3. PRAVASTATIN [Suspect]
     Indication: LIPOPROTEIN (A) INCREASED
  4. COREG [Concomitant]
     Indication: PRODUCT USED FOR UNKNOWN INDICATION
  5. POTASSIUM [Concomitant]
     Indication: PRODUCT USED FOR UNKNOWN INDICATION
  6. PANTOPRAZOLE [Concomitant]
     Indication: PRODUCT USED FOR UNKNOWN INDICATION
  7. ASA [Concomitant]
     Indication: PRODUCT USED FOR UNKNOWN INDICATION

REACTIONS (1)
  - Hepatic enzyme increased [Recovered/Resolved]
